FAERS Safety Report 4657655-6 (Version None)
Quarter: 2005Q2

REPORT INFORMATION
  Report Type: 
  Country: None (occurrence: None)
  Receive Date: 20050509
  Receipt Date: 20050509
  Transmission Date: 20051028
  Serious: Yes (Death)
  Sender: FDA-Public Use
  Company Number: None

PATIENT
  Age: 23 Year
  Sex: Female

DRUGS (1)
  1. RETEVASE [Suspect]
     Indication: DEEP VEIN THROMBOSIS
     Dates: start: 20050125, end: 20050126

REACTIONS (6)
  - CIRCULATORY COLLAPSE [None]
  - COAGULOPATHY [None]
  - HAEMOLYTIC ANAEMIA [None]
  - HAEMORRHAGE [None]
  - RENAL FAILURE [None]
  - THROMBOCYTOPENIA [None]
